FAERS Safety Report 24108698 (Version 1)
Quarter: 2024Q3

REPORT INFORMATION
  Report Type: Spontaneous
  Country: US (occurrence: US)
  Receive Date: 20240718
  Receipt Date: 20240718
  Transmission Date: 20241017
  Serious: Yes (Other)
  Sender: PADAGIS
  Company Number: US-PADAGIS-2024PAD01141

PATIENT

DRUGS (5)
  1. BUDESONIDE [Suspect]
     Active Substance: BUDESONIDE
     Indication: Colitis ulcerative
     Dosage: UNK
     Route: 065
     Dates: start: 202407
  2. BUDESONIDE [Suspect]
     Active Substance: BUDESONIDE
     Indication: Rectal tenesmus
     Dosage: SALIX BRANDED UCERIS PRODUCT
     Route: 065
  3. BUDESONIDE [Suspect]
     Active Substance: BUDESONIDE
     Indication: Constipation
     Dosage: UNK
     Route: 065
     Dates: start: 202402, end: 202404
  4. BUDESONIDE [Suspect]
     Active Substance: BUDESONIDE
     Dosage: UNK SECOND CANNISTERS
  5. KAOPECTATE [ATTAPULGITE] [Concomitant]
     Indication: Product used for unknown indication
     Dosage: UNK
     Route: 065

REACTIONS (2)
  - Drug ineffective [Unknown]
  - Product container issue [Unknown]

NARRATIVE: CASE EVENT DATE: 20240701
